FAERS Safety Report 15892151 (Version 1)
Quarter: 2019Q1

REPORT INFORMATION
  Report Type: Report from Study
  Country: US (occurrence: US)
  Receive Date: 20190130
  Receipt Date: 20190130
  Transmission Date: 20190417
  Serious: No
  Sender: FDA-Public Use
  Company Number: US-EXELIXIS-CABO-18015144

PATIENT
  Age: 75 Year
  Sex: Male

DRUGS (9)
  1. CABOMETYX [Suspect]
     Active Substance: CABOZANTINIB S-MALATE
     Indication: RENAL CANCER
     Dosage: 60 MG, QD
     Route: 048
     Dates: end: 20180614
  2. SIMVASTATIN. [Concomitant]
     Active Substance: SIMVASTATIN
  3. DEXAMETHASONE. [Concomitant]
     Active Substance: DEXAMETHASONE
  4. VENTOLIN HFA [Concomitant]
     Active Substance: ALBUTEROL SULFATE
  5. FOLIC ACID. [Concomitant]
     Active Substance: FOLIC ACID
  6. TAMSULOSIN [Concomitant]
     Active Substance: TAMSULOSIN
  7. BACLOFEN. [Suspect]
     Active Substance: BACLOFEN
  8. OXYBUTYNIN. [Concomitant]
     Active Substance: OXYBUTYNIN CHLORIDE
  9. OMEPRAZOLE. [Concomitant]
     Active Substance: OMEPRAZOLE

REACTIONS (6)
  - Productive cough [Unknown]
  - Erythema [Unknown]
  - Hallucination [Unknown]
  - Tinnitus [Recovered/Resolved]
  - Insomnia [Unknown]
  - Dizziness [Unknown]

NARRATIVE: CASE EVENT DATE: 20180723
